FAERS Safety Report 5739472-9 (Version None)
Quarter: 2008Q2

REPORT INFORMATION
  Report Type: 
  Country: None (occurrence: None)
  Receive Date: 20080513
  Receipt Date: 20080502
  Transmission Date: 20081010
  Serious: Yes (Hospitalization)
  Sender: FDA-Public Use
  Company Number: 2008-02805

PATIENT
  Age: 38 Year
  Sex: Male

DRUGS (3)
  1. FENTANYL CITRATE [Suspect]
     Indication: ANAESTHESIA
     Dosage: 0.1 MG, INTRAVENOUS
     Route: 042
  2. VECURONIUM BROMIDE [Suspect]
     Indication: ANAESTHESIA
     Dosage: 7.5 MG, INTRAVENOUS
     Route: 042
  3. THIOPENTAL SODIUM [Suspect]
     Indication: ANAESTHESIA
     Dosage: 525 MG

REACTIONS (1)
  - HYPERTHERMIA MALIGNANT [None]
